FAERS Safety Report 8200422-7 (Version None)
Quarter: 2012Q1

REPORT INFORMATION
  Report Type: 
  Country: None (occurrence: None)
  Receive Date: 20120309
  Receipt Date: 20120309
  Transmission Date: 20120608
  Serious: Yes (Hospitalization)
  Sender: FDA-Public Use
  Company Number: None

PATIENT
  Age: 61 Year
  Sex: Male

DRUGS (1)
  1. DILTIAZEM HCL [Suspect]
     Indication: ATRIAL FIBRILLATION
     Dates: start: 20120109, end: 20120110

REACTIONS (5)
  - BRADYCARDIA [None]
  - ABDOMINAL PAIN [None]
  - HYPERHIDROSIS [None]
  - DYSPNOEA [None]
  - HYPOTENSION [None]
